FAERS Safety Report 20371371 (Version 1)
Quarter: 2022Q1

REPORT INFORMATION
  Report Type: Spontaneous
  Country: US (occurrence: US)
  Receive Date: 20220124
  Receipt Date: 20220124
  Transmission Date: 20220424
  Serious: Yes (Hospitalization)
  Sender: FDA-Public Use
  Company Number: US-TEVA-2022-US-2001923

PATIENT
  Age: 0 Day
  Sex: Female
  Weight: 3.2 kg

DRUGS (19)
  1. OXYCODONE [Suspect]
     Active Substance: OXYCODONE
     Indication: Multiple fractures
     Route: 064
     Dates: start: 2004, end: 2010
  2. OXYCODONE [Suspect]
     Active Substance: OXYCODONE
     Indication: Pain
  3. TRAMADOL HCL [Suspect]
     Active Substance: TRAMADOL HYDROCHLORIDE
     Indication: Multiple fractures
     Dosage: PRN
     Route: 064
     Dates: start: 19931030
  4. TRAMADOL HCL [Suspect]
     Active Substance: TRAMADOL HYDROCHLORIDE
     Indication: Pain
  5. ACETAMINOPHEN\HYDROCODONE [Suspect]
     Active Substance: ACETAMINOPHEN\HYDROCODONE
     Indication: Pain
     Dosage: 10/325 MG , IN 2008, TAKE 1 OR 2 TAB 4 TIMES A DAY  AS NEEDED
     Route: 064
  6. ACETAMINOPHEN\HYDROCODONE [Suspect]
     Active Substance: ACETAMINOPHEN\HYDROCODONE
     Dosage: 12 DOSAGE FORMS DAILY; 10/325 MG , IN 2006
     Route: 064
  7. ACETAMINOPHEN\HYDROCODONE [Suspect]
     Active Substance: ACETAMINOPHEN\HYDROCODONE
     Dosage: 10/325 MG,  TAKE 2/3 TAB Q4H AS NEEDED FOR PAIN (MAX 12 TAB/DAY), IN 2006
     Route: 064
  8. ACETAMINOPHEN\HYDROCODONE [Suspect]
     Active Substance: ACETAMINOPHEN\HYDROCODONE
     Dosage: 10/325 MG, TAKE 3 TAB 4 TIMES A DAY, IN -2007
     Route: 064
  9. NORCO [Suspect]
     Active Substance: ACETAMINOPHEN\HYDROCODONE BITARTRATE
     Indication: Multiple fractures
     Route: 064
     Dates: start: 2004, end: 2010
  10. NORCO [Suspect]
     Active Substance: ACETAMINOPHEN\HYDROCODONE BITARTRATE
     Indication: Pain
  11. OXYCONTIN [Suspect]
     Active Substance: OXYCODONE HYDROCHLORIDE
     Indication: Multiple fractures
     Route: 064
     Dates: start: 2004, end: 2010
  12. OXYCONTIN [Suspect]
     Active Substance: OXYCODONE HYDROCHLORIDE
     Indication: Pain
     Dosage: IN -2008, 1-3 TAB 2 TIMES A DAY.
     Route: 064
  13. VICODIN [Suspect]
     Active Substance: ACETAMINOPHEN\HYDROCODONE BITARTRATE
     Indication: Multiple fractures
     Route: 064
     Dates: start: 2004, end: 2010
  14. VICODIN [Suspect]
     Active Substance: ACETAMINOPHEN\HYDROCODONE BITARTRATE
     Indication: Pain
  15. OXYCODONE [Suspect]
     Active Substance: OXYCODONE
     Indication: Pain
     Dosage: TAKE 2-3 TAB BID, IN -2007
     Route: 064
  16. OXYCODONE [Suspect]
     Active Substance: OXYCODONE
     Dosage: 6 DOSAGE FORMS DAILY; IN -2006
     Route: 064
  17. OXYCODONE [Suspect]
     Active Substance: OXYCODONE
     Dosage: TAKE1 TO 3 TAB BID, IN -2008.
     Route: 064
  18. OXYCODONE [Suspect]
     Active Substance: OXYCODONE
     Dosage: TAKE 1 OR 2 TAB BID
     Route: 064
  19. OXYCODONE [Suspect]
     Active Substance: OXYCODONE
     Dosage: 6 DOSAGE FORMS DAILY; IN -2007.
     Route: 064

REACTIONS (9)
  - Drug withdrawal syndrome neonatal [Unknown]
  - Foetal exposure during pregnancy [Unknown]
  - Attention deficit hyperactivity disorder [Unknown]
  - Anxiety [Unknown]
  - Behaviour disorder [Unknown]
  - Developmental delay [Unknown]
  - Rash papular [Recovered/Resolved]
  - Vomiting [Recovered/Resolved]
  - Diarrhoea [Recovered/Resolved]

NARRATIVE: CASE EVENT DATE: 20070731
